FAERS Safety Report 7115600-8 (Version None)
Quarter: 2010Q4

REPORT INFORMATION
  Report Type: 
  Country: None (occurrence: None)
  Receive Date: 20101122
  Receipt Date: 20101109
  Transmission Date: 20110411
  Serious: Yes (Death, Other)
  Sender: FDA-Public Use
  Company Number: ZA-ELI_LILLY_AND_COMPANY-ZA201011003190

PATIENT
  Age: 25 Year
  Sex: Female

DRUGS (2)
  1. ZYPREXA [Suspect]
     Indication: SCHIZOPHRENIA
     Dosage: 10 MG, DAILY (1/D)
     Route: 048
     Dates: start: 20080901, end: 20101103
  2. ZYPREXA [Suspect]
     Dosage: 10 MG, 2/D
     Route: 048
     Dates: start: 20101104

REACTIONS (8)
  - COMPLETED SUICIDE [None]
  - DECREASED APPETITE [None]
  - HYPERSOMNIA [None]
  - LETHARGY [None]
  - MEMORY IMPAIRMENT [None]
  - MUTISM [None]
  - SUICIDAL IDEATION [None]
  - TREMOR [None]
